FAERS Safety Report 8431201-3 (Version None)
Quarter: 2012Q2

REPORT INFORMATION
  Report Type: 
  Country: None (occurrence: None)
  Receive Date: 20120612
  Receipt Date: 20120610
  Transmission Date: 20120825
  Serious: Yes (Death)
  Sender: FDA-Public Use
  Company Number: PHHY2012CA049304

PATIENT
  Age: 27 Year
  Sex: Female

DRUGS (11)
  1. OXCARBAZEPINE [Suspect]
  2. VALPROIC ACID [Suspect]
  3. KETAMINE HCL [Suspect]
  4. LEVETIRACETAM [Suspect]
  5. CLOBAZAM [Suspect]
  6. IMMUNE GLOBULIN (HUMAN) [Suspect]
  7. TOPIRAMATE [Suspect]
  8. ISOFLURANE [Suspect]
  9. MIDAZOLAM [Suspect]
  10. MAGNESIUM [Suspect]
  11. LACOSAMIDE [Suspect]

REACTIONS (1)
  - DEATH [None]
